FAERS Safety Report 18656087 (Version 1)
Quarter: 2020Q4

REPORT INFORMATION
  Report Type: Spontaneous
  Country: DE (occurrence: DE)
  Receive Date: 20201223
  Receipt Date: 20201223
  Transmission Date: 20210114
  Serious: Yes (Other)
  Sender: FDA-Public Use
  Company Number: NVSC2020DE339861

PATIENT
  Age: 22 Year
  Sex: Female

DRUGS (2)
  1. OXALIPLATIN. [Suspect]
     Active Substance: OXALIPLATIN
     Indication: HEPATOCELLULAR CARCINOMA
     Dosage: 85 MG/M2, BIW
     Route: 065
  2. GEMCITABINE. [Suspect]
     Active Substance: GEMCITABINE
     Indication: HEPATOCELLULAR CARCINOMA
     Dosage: 1000 MG/M2, BIW
     Route: 065

REACTIONS (6)
  - Metastases to pelvis [Unknown]
  - Product use in unapproved indication [Unknown]
  - Hepatocellular carcinoma [Unknown]
  - Metastases to lung [Unknown]
  - Metastases to lymph nodes [Unknown]
  - Metastases to peritoneum [Unknown]
